FAERS Safety Report 15490550 (Version 4)
Quarter: 2022Q2

REPORT INFORMATION
  Report Type: Report from Study
  Country: IT (occurrence: IT)
  Receive Date: 20181011
  Receipt Date: 20220512
  Transmission Date: 20220720
  Serious: Yes (Hospitalization)
  Sender: FDA-Public Use
  Company Number: PHHO2018IT010967

PATIENT
  Age: 49 Year
  Sex: Female
  Weight: 45 kg

DRUGS (2)
  1. RIBOCICLIB [Suspect]
     Active Substance: RIBOCICLIB
     Indication: Breast cancer
     Dosage: 600 MG, DIE, Q21
     Route: 048
     Dates: start: 20180609, end: 20180925
  2. LETROZOLE [Suspect]
     Active Substance: LETROZOLE
     Indication: Breast cancer
     Dosage: 2.5 MG, DIE
     Route: 048
     Dates: start: 20180608, end: 20181001

REACTIONS (1)
  - Bradyarrhythmia [Recovered/Resolved with Sequelae]

NARRATIVE: CASE EVENT DATE: 20181002
